FAERS Safety Report 6285138-9 (Version None)
Quarter: 2009Q3

REPORT INFORMATION
  Report Type: 
  Country: None (occurrence: None)
  Receive Date: 20090727
  Receipt Date: 20090715
  Transmission Date: 20100115
  Serious: Yes (Other)
  Sender: FDA-Public Use
  Company Number: JP-PFIZER INC-2009242123

PATIENT
  Age: 85 Year

DRUGS (4)
  1. GABAPEN [Suspect]
     Indication: PAIN
     Dosage: 1000 MG, 1X/DAY
     Route: 048
     Dates: start: 20070601, end: 20081201
  2. TEGRETOL [Suspect]
     Indication: PAIN
     Dosage: 300 MG, 1X/DAY
     Dates: start: 20061001, end: 20081201
  3. AMLODIPINE [Concomitant]
     Route: 048
     Dates: start: 20020101
  4. LOXONIN [Concomitant]
     Route: 048
     Dates: start: 20061001

REACTIONS (2)
  - PNEUMOMEDIASTINUM [None]
  - PULMONARY FIBROSIS [None]
